FAERS Safety Report 23718398 (Version 2)
Quarter: 2024Q2

REPORT INFORMATION
  Report Type: Spontaneous
  Country: NO (occurrence: NO)
  Receive Date: 20240408
  Receipt Date: 20240417
  Transmission Date: 20240716
  Serious: Yes (Hospitalization, Other)
  Sender: FDA-Public Use
  Company Number: NO-002147023-NVSC2024NO062896

PATIENT
  Age: 12 Year
  Sex: Male

DRUGS (36)
  1. METHOTREXATE [Suspect]
     Active Substance: METHOTREXATE
     Indication: Graft versus host disease
     Dosage: UNK (DAY +1, +3, +6)
     Route: 065
  2. CYCLOSPORINE [Suspect]
     Active Substance: CYCLOSPORINE
     Indication: Graft versus host disease
     Dosage: UNK (25SEP)
     Route: 048
  3. CYCLOSPORINE [Suspect]
     Active Substance: CYCLOSPORINE
     Indication: Immunosuppression
     Dosage: UNK ( 29SEP)
     Route: 042
  4. CYCLOSPORINE [Suspect]
     Active Substance: CYCLOSPORINE
     Dosage: 100 MG, 2X/DAY (08FEB)
     Route: 065
  5. CYCLOSPORINE [Suspect]
     Active Substance: CYCLOSPORINE
     Dosage: 125 MG, 2X/DAY
     Route: 065
  6. CYCLOSPORINE [Suspect]
     Active Substance: CYCLOSPORINE
     Dosage: 75 MG, 2X/DAY FROM 25SEP
     Route: 065
  7. CYCLOSPORINE [Suspect]
     Active Substance: CYCLOSPORINE
     Dosage: 75 MG, 2X/DAY (15FEB)
     Route: 065
  8. CYCLOSPORINE [Suspect]
     Active Substance: CYCLOSPORINE
     Dosage: 50 + 75 MG (07AUG)
  9. CYCLOSPORINE [Suspect]
     Active Substance: CYCLOSPORINE
     Dosage: 50 + 25 MG (FROM 10AUG TO 27AUG)
  10. RUXOLITINIB [Suspect]
     Active Substance: RUXOLITINIB
     Indication: Graft versus host disease
     Dosage: 5 MG, 2X/DAY FROM 28SEP
  11. RUXOLITINIB [Suspect]
     Active Substance: RUXOLITINIB
     Dosage: 10 MG, 2X/DAY 29SEP
  12. RUXOLITINIB [Suspect]
     Active Substance: RUXOLITINIB
     Dosage: STARTED TAPERING 20NOV, STOPPED 04DEC
  13. RUXOLITINIB [Suspect]
     Active Substance: RUXOLITINIB
     Dosage: 2.5 MG, 2X/DAY
     Dates: start: 20240109
  14. RUXOLITINIB [Suspect]
     Active Substance: RUXOLITINIB
     Dosage: RESTARTED 5 MG, 2X/DAY DUE TO SKIN-GVHD 14DEC
  15. RUXOLITINIB [Suspect]
     Active Substance: RUXOLITINIB
     Dosage: 1.25 MG, 2X/DAY 22JAN
  16. VALACYCLOVIR HYDROCHLORIDE [Concomitant]
     Active Substance: VALACYCLOVIR HYDROCHLORIDE
     Indication: Prophylaxis
     Dosage: FROM DAY +60
  17. POSACONAZOLE [Concomitant]
     Active Substance: POSACONAZOLE
     Indication: Prophylaxis
     Dosage: UNK
  18. TREOSULFAN [Concomitant]
     Active Substance: TREOSULFAN
     Dosage: 14 G/M2 DAY-6 TO-4
  19. FLUDARABINE [Concomitant]
     Active Substance: FLUDARABINE PHOSPHATE
     Dosage: 30 MG/M2 DAY-7 TO-3
  20. THIOTEPA [Concomitant]
     Active Substance: THIOTEPA
     Dosage: 5 MG/KG, 2X/DAY DAY -2
  21. TRIMETHOPRIM [Concomitant]
     Active Substance: TRIMETHOPRIM
     Indication: Prophylaxis
     Dosage: UNK
  22. BUDESONIDE [Concomitant]
     Active Substance: BUDESONIDE
     Dosage: 9 MG FROM 26SEP
  23. METHYLPREDNISOLONE [Concomitant]
     Active Substance: METHYLPREDNISOLONE
     Dosage: INCREASED TO 2 MG/KG, REDUSED DIARRHEA 2-2.7 L/D
  24. METHYLPREDNISOLONE [Concomitant]
     Active Substance: METHYLPREDNISOLONE
     Dosage: 0.5 MG/KG 30OCT
  25. METHYLPREDNISOLONE [Concomitant]
     Active Substance: METHYLPREDNISOLONE
     Dosage: 1.5 MG/KG 16OCT
  26. METHYLPREDNISOLONE [Concomitant]
     Active Substance: METHYLPREDNISOLONE
     Dosage: 1 MG/KG 25SEP
     Route: 065
  27. METHYLPREDNISOLONE [Concomitant]
     Active Substance: METHYLPREDNISOLONE
     Dosage: 2 MG/KG 22SEP, REDUCED TO 1 MG/KG AFTER 5 DAYS
  28. METHYLPREDNISOLONE [Concomitant]
     Active Substance: METHYLPREDNISOLONE
     Dosage: 0.5 MG/KG 29SEP
  29. METHYLPREDNISOLONE [Concomitant]
     Active Substance: METHYLPREDNISOLONE
     Dosage: 0.25 MG/KG 06NOV
  30. METHYLPREDNISOLONE [Concomitant]
     Active Substance: METHYLPREDNISOLONE
     Dosage: 2 MG/KG 02OCT
  31. METHYLPREDNISOLONE [Concomitant]
     Active Substance: METHYLPREDNISOLONE
     Dosage: 2 MG/KG 22SEP
  32. METHYLPREDNISOLONE [Concomitant]
     Active Substance: METHYLPREDNISOLONE
     Dosage: 1 MG/KG 23OCT
  33. GANCICLOVIR [Concomitant]
     Active Substance: GANCICLOVIR
     Dosage: 5 MG/KG X 2
     Route: 042
  34. PREDNISOLONE [Concomitant]
     Active Substance: PREDNISOLONE
     Indication: Immunosuppression
     Dosage: 12.5 MG, DAILY (07AUG)
  35. PREDNISOLONE [Concomitant]
     Active Substance: PREDNISOLONE
     Dosage: 7.5 MG, DAILY (FROM 10AUG TO 27AUG)
  36. RITUXIMAB [Concomitant]
     Active Substance: RITUXIMAB
     Dosage: 375 MG/M2 DAY +28

REACTIONS (19)
  - Cytomegalovirus infection [Unknown]
  - Epstein-Barr virus infection [Unknown]
  - Adenovirus infection [Unknown]
  - Human herpesvirus 8 infection [Unknown]
  - Intestinal haemorrhage [Unknown]
  - Secondary adrenocortical insufficiency [Unknown]
  - Thrombocytopenia [Unknown]
  - Kaposi sarcoma inflammatory cytokine syndrome [Unknown]
  - Osteoporotic fracture [Unknown]
  - Myositis [Unknown]
  - Vomiting [Unknown]
  - Abdominal pain [Unknown]
  - Electrolyte imbalance [Unknown]
  - Rash [Unknown]
  - Diarrhoea [Unknown]
  - Decreased appetite [Unknown]
  - Feeding intolerance [Unknown]
  - Pyrexia [Unknown]
  - Nausea [Unknown]
